FAERS Safety Report 17628795 (Version 2)
Quarter: 2020Q2

REPORT INFORMATION
  Report Type: Spontaneous
  Country: US (occurrence: US)
  Receive Date: 20200406
  Receipt Date: 20200409
  Transmission Date: 20200713
  Serious: Yes (Other)
  Sender: FDA-Public Use
  Company Number: US-GLAXOSMITHKLINE-US2020AMR054040

PATIENT
  Sex: Female

DRUGS (3)
  1. ZEJULA [Suspect]
     Active Substance: NIRAPARIB
     Indication: OVARIAN CANCER
     Dosage: 200 MG, QD
     Route: 048
     Dates: start: 20200324
  2. ZEJULA [Suspect]
     Active Substance: NIRAPARIB
     Dosage: 200 MG, QD
     Route: 048
     Dates: start: 20200325
  3. ZEJULA [Suspect]
     Active Substance: NIRAPARIB
     Dosage: 1 DF, QD

REACTIONS (16)
  - Blood sodium decreased [Unknown]
  - Incorrect dose administered [Unknown]
  - Nausea [Recovering/Resolving]
  - Weight decreased [Unknown]
  - Dry mouth [Unknown]
  - Constipation [Unknown]
  - Back pain [Unknown]
  - Dry throat [Unknown]
  - Ill-defined disorder [Unknown]
  - Asthenia [Unknown]
  - Decreased appetite [Unknown]
  - Humidity intolerance [Unknown]
  - Muscular weakness [Unknown]
  - Pulmonary oedema [Unknown]
  - Feeling cold [Unknown]
  - Blood magnesium decreased [Unknown]
